FAERS Safety Report 18766646 (Version 53)
Quarter: 2025Q3

REPORT INFORMATION
  Report Type: Other
  Country: GB (occurrence: GB)
  Receive Date: 20210121
  Receipt Date: 20250817
  Transmission Date: 20251021
  Serious: Yes (Death, Hospitalization, Other)
  Sender: MACLEODS
  Company Number: GB-MACLEODS PHARMACEUTICALS US LTD-MAC2021029839

PATIENT

DRUGS (301)
  1. ARIPIPRAZOLE [Suspect]
     Active Substance: ARIPIPRAZOLE
     Indication: Schizophrenia
     Route: 065
  2. ARIPIPRAZOLE [Suspect]
     Active Substance: ARIPIPRAZOLE
     Indication: Schizophrenia
     Route: 048
  3. ARIPIPRAZOLE [Suspect]
     Active Substance: ARIPIPRAZOLE
     Route: 048
  4. ARIPIPRAZOLE [Suspect]
     Active Substance: ARIPIPRAZOLE
     Route: 048
  5. ARIPIPRAZOLE [Suspect]
     Active Substance: ARIPIPRAZOLE
     Route: 048
  6. ARIPIPRAZOLE [Suspect]
     Active Substance: ARIPIPRAZOLE
     Route: 065
  7. ARIPIPRAZOLE [Suspect]
     Active Substance: ARIPIPRAZOLE
     Route: 048
  8. ARIPIPRAZOLE [Suspect]
     Active Substance: ARIPIPRAZOLE
     Route: 048
  9. LEVOFLOXACIN [Suspect]
     Active Substance: LEVOFLOXACIN
     Indication: Febrile neutropenia
     Dosage: 500 MILLIGRAM, QD (CUMULATIVE DOSE: 3000)
     Route: 048
     Dates: start: 20151125
  10. OLANZAPINE [Suspect]
     Active Substance: OLANZAPINE
     Indication: Schizophrenia
     Route: 048
     Dates: start: 20040217
  11. OLANZAPINE [Suspect]
     Active Substance: OLANZAPINE
     Route: 048
  12. OLANZAPINE [Suspect]
     Active Substance: OLANZAPINE
     Route: 048
     Dates: start: 20060704
  13. OLANZAPINE [Suspect]
     Active Substance: OLANZAPINE
     Route: 048
  14. OLANZAPINE [Suspect]
     Active Substance: OLANZAPINE
     Route: 048
     Dates: start: 20040217
  15. OLANZAPINE [Suspect]
     Active Substance: OLANZAPINE
     Dosage: 2.5 MILLIGRAM
     Route: 048
     Dates: start: 20080823
  16. OLANZAPINE [Suspect]
     Active Substance: OLANZAPINE
     Route: 048
  17. OLANZAPINE [Suspect]
     Active Substance: OLANZAPINE
     Route: 048
  18. OLANZAPINE [Suspect]
     Active Substance: OLANZAPINE
     Route: 048
     Dates: start: 20060704
  19. OLANZAPINE [Suspect]
     Active Substance: OLANZAPINE
     Route: 048
  20. OLANZAPINE [Suspect]
     Active Substance: OLANZAPINE
     Route: 065
  21. OLANZAPINE [Suspect]
     Active Substance: OLANZAPINE
     Route: 065
  22. OLANZAPINE [Suspect]
     Active Substance: OLANZAPINE
     Route: 048
  23. OLANZAPINE [Suspect]
     Active Substance: OLANZAPINE
     Route: 048
  24. OLANZAPINE [Suspect]
     Active Substance: OLANZAPINE
     Route: 048
  25. HALOPERIDOL [Suspect]
     Active Substance: HALOPERIDOL
     Indication: Schizophrenia
     Dosage: 5 MILLIGRAM, BID, 10 MG QD
     Route: 065
  26. HALOPERIDOL [Suspect]
     Active Substance: HALOPERIDOL
     Dosage: 5 MILLIGRAM, BID, 10 MG QD
     Route: 048
  27. HALOPERIDOL [Suspect]
     Active Substance: HALOPERIDOL
     Dosage: 40 MILLIGRAM, QD
     Route: 048
  28. HALOPERIDOL [Suspect]
     Active Substance: HALOPERIDOL
     Dosage: 10 MILLIGRAM, QD
     Route: 065
  29. HALOPERIDOL [Suspect]
     Active Substance: HALOPERIDOL
     Dosage: 5 MILLIGRAM, QD
     Route: 048
  30. HALOPERIDOL [Suspect]
     Active Substance: HALOPERIDOL
     Dosage: 20 MILLIGRAM, BID (10 MILLIGRAM, BID)
     Route: 048
  31. HALOPERIDOL [Suspect]
     Active Substance: HALOPERIDOL
     Dosage: 10 MILLIGRAM, BID, 20 MG QD
     Route: 065
  32. HALOPERIDOL [Suspect]
     Active Substance: HALOPERIDOL
     Dosage: 10 MILLIGRAM, BID, 20 MG QD
     Route: 065
  33. HALOPERIDOL [Suspect]
     Active Substance: HALOPERIDOL
     Dosage: 10 MILLIGRAM, BID, 20 MG QD
     Route: 065
  34. HALOPERIDOL [Suspect]
     Active Substance: HALOPERIDOL
     Dosage: 20 MILLIGRAM, BID
     Route: 048
  35. HALOPERIDOL [Suspect]
     Active Substance: HALOPERIDOL
     Dosage: 5 MILLIGRAM, BID, 10 MG QD
     Route: 048
  36. HALOPERIDOL [Suspect]
     Active Substance: HALOPERIDOL
     Dosage: 5 MILLIGRAM, BID, 10 MG QD
     Route: 065
  37. HALOPERIDOL [Suspect]
     Active Substance: HALOPERIDOL
     Dosage: 5 MILLIGRAM, BID, 10 MG QD
     Route: 048
  38. HALOPERIDOL [Suspect]
     Active Substance: HALOPERIDOL
     Dosage: 5 MILLIGRAM, BID, 10 MG QD
     Route: 048
  39. HALOPERIDOL [Suspect]
     Active Substance: HALOPERIDOL
     Dosage: 10 MILLIGRAM, BID, 20 MG QD
     Route: 048
  40. HALOPERIDOL [Suspect]
     Active Substance: HALOPERIDOL
     Dosage: 5 MILLIGRAM, BID, 10 MG QD
     Route: 048
  41. HALOPERIDOL [Suspect]
     Active Substance: HALOPERIDOL
     Dosage: 20 MILLIGRAM, BID, 40 MG QD
     Route: 048
  42. CHLORPROMAZINE [Suspect]
     Active Substance: CHLORPROMAZINE
     Indication: Schizophrenia
     Route: 048
  43. CHLORPROMAZINE [Suspect]
     Active Substance: CHLORPROMAZINE
     Route: 048
  44. CHLORPROMAZINE [Suspect]
     Active Substance: CHLORPROMAZINE
     Route: 048
  45. CHLORPROMAZINE [Suspect]
     Active Substance: CHLORPROMAZINE
     Route: 048
  46. CHLORPROMAZINE [Suspect]
     Active Substance: CHLORPROMAZINE
     Route: 048
  47. CHLORPROMAZINE [Suspect]
     Active Substance: CHLORPROMAZINE
     Route: 048
  48. CHLORPROMAZINE [Suspect]
     Active Substance: CHLORPROMAZINE
     Route: 048
  49. CHLORPROMAZINE [Suspect]
     Active Substance: CHLORPROMAZINE
     Route: 048
  50. CHLORPROMAZINE [Suspect]
     Active Substance: CHLORPROMAZINE
     Route: 048
  51. CHLORPROMAZINE [Suspect]
     Active Substance: CHLORPROMAZINE
     Route: 048
  52. CHLORPROMAZINE [Suspect]
     Active Substance: CHLORPROMAZINE
     Route: 048
  53. CHLORPROMAZINE [Suspect]
     Active Substance: CHLORPROMAZINE
     Route: 048
  54. ACETAMINOPHEN [Suspect]
     Active Substance: ACETAMINOPHEN
     Indication: Pain
     Route: 048
     Dates: start: 20151027
  55. ACETAMINOPHEN [Suspect]
     Active Substance: ACETAMINOPHEN
     Route: 065
     Dates: start: 201509
  56. ACETAMINOPHEN [Suspect]
     Active Substance: ACETAMINOPHEN
     Dosage: 15 MILLIGRAM, QD
     Route: 048
  57. ACETAMINOPHEN [Suspect]
     Active Substance: ACETAMINOPHEN
     Route: 065
     Dates: start: 20151027
  58. ACETAMINOPHEN [Suspect]
     Active Substance: ACETAMINOPHEN
     Dosage: 15 MILLIGRAM, QD (TABLET)
     Route: 065
     Dates: start: 201510
  59. ACETAMINOPHEN [Suspect]
     Active Substance: ACETAMINOPHEN
     Route: 065
     Dates: start: 20150127
  60. CLOZAPINE [Suspect]
     Active Substance: CLOZAPINE
     Indication: Schizophrenia
     Dosage: 800 MG, QD (DOSE TEXT: 800 MG, QD; CUMULATIVE DOSE TO FIRST REACTION: 1490400.0 MG)
     Route: 048
     Dates: start: 20201207
  61. CLOZAPINE [Suspect]
     Active Substance: CLOZAPINE
     Indication: Schizophrenia
     Dosage: 200 MILLIGRAM, QD (OFF LABEL USE) (POWDER FOR INFUSION)
     Route: 048
     Dates: start: 20100823
  62. CLOZAPINE [Suspect]
     Active Substance: CLOZAPINE
     Dosage: 300 MILLIGRAM, QD, AT NIGHT, PM (POWDER FOR INFUSION)
     Route: 048
  63. CLOZAPINE [Suspect]
     Active Substance: CLOZAPINE
     Dosage: 200 MILLIGRAM, BID, 400 MG QD (POWDER FOR INFUSION)
     Route: 048
  64. CLOZAPINE [Suspect]
     Active Substance: CLOZAPINE
     Route: 048
     Dates: start: 20191209, end: 20191223
  65. CLOZAPINE [Suspect]
     Active Substance: CLOZAPINE
     Dosage: 400 MILLIGRAM, BID, 800 MG QD (POWDER FOR INFUSION)
     Route: 048
     Dates: start: 20201207
  66. CLOZAPINE [Suspect]
     Active Substance: CLOZAPINE
     Dosage: 245 MILLIGRAM, QD, IN THE MORNING (POWDER FOR INFUSION)
     Route: 048
     Dates: start: 20191223, end: 20191223
  67. CLOZAPINE [Suspect]
     Active Substance: CLOZAPINE
     Dosage: 400 MILLIGRAM, QD (POWDER FOR INFUSION)
     Route: 048
     Dates: start: 20191223, end: 20191223
  68. CLOZAPINE [Suspect]
     Active Substance: CLOZAPINE
     Route: 048
     Dates: start: 20200521, end: 2020
  69. CLOZAPINE [Suspect]
     Active Substance: CLOZAPINE
     Dosage: 245 MILLIGRAM (POWDER FOR INFUSION)
     Route: 048
     Dates: start: 20191209, end: 20191223
  70. CLOZAPINE [Suspect]
     Active Substance: CLOZAPINE
     Dosage: 1 DOSAGE FORM, EACH MORNING (POWDER FOR INFUSION)
     Route: 048
     Dates: start: 2011
  71. CLOZAPINE [Suspect]
     Active Substance: CLOZAPINE
     Dosage: 50 MILLIGRAM, QD (POWDER FOR INFUSION)
     Route: 048
  72. CLOZAPINE [Suspect]
     Active Substance: CLOZAPINE
     Route: 048
     Dates: start: 20191223, end: 20191223
  73. CLOZAPINE [Suspect]
     Active Substance: CLOZAPINE
     Dosage: 275 MILLIGRAM, QD, PM (POWDER FOR INFUSION)
     Route: 048
     Dates: start: 20200521, end: 2020
  74. CLOZAPINE [Suspect]
     Active Substance: CLOZAPINE
     Dosage: 100 MILLIGRAM, QD, IN THE MORNING (POWDER FOR INFUSION)
     Route: 048
     Dates: start: 20200521
  75. CLOZAPINE [Suspect]
     Active Substance: CLOZAPINE
     Dosage: 275 MILLIGRAM, QD, AT NIGHT, PM (POWDER FOR INFUSION)
     Route: 048
  76. CLOZAPINE [Suspect]
     Active Substance: CLOZAPINE
     Dosage: 200 MILLIGRAM, BID (POWDER FOR INFUSION)
     Route: 048
     Dates: start: 20191209, end: 20191223
  77. CLOZAPINE [Suspect]
     Active Substance: CLOZAPINE
     Dosage: 200 MILLIGRAM, BID, 400 MG QD ( POWDER FOR INFUSION)
     Route: 048
  78. CLOZAPINE [Suspect]
     Active Substance: CLOZAPINE
     Dosage: 200 MILLIGRAM, BID, 400 MG QD ((POWDER FOR INFUSION)
     Route: 065
  79. CLOZAPINE [Suspect]
     Active Substance: CLOZAPINE
     Dosage: 400 MG, QD (400 MG, QD; CUMULATIVE DOSE TO FIRST REACTION: 745200.0 MG)
     Route: 048
     Dates: start: 20201207
  80. CLOZAPINE [Suspect]
     Active Substance: CLOZAPINE
     Dosage: 300 MILLIGRAM, QD, AT NIGHT, PM (POWDER FOR INFUSION)
     Route: 065
  81. CLOZAPINE [Suspect]
     Active Substance: CLOZAPINE
     Dosage: 300 MILLIGRAM, QD, AT NIGHT, PM (POWDER FOR INFUSION)
     Route: 065
  82. CLOZAPINE [Suspect]
     Active Substance: CLOZAPINE
     Dosage: 200 MILLIGRAM, BID, 400 MG QD (POWDER FOR INFUSION)
     Route: 065
  83. CLOZAPINE [Suspect]
     Active Substance: CLOZAPINE
     Dosage: 50 MILLIGRAM, QD, MIDDAY, TABLET (POWDER FOR INFUSION)
     Route: 048
  84. CLOZAPINE [Suspect]
     Active Substance: CLOZAPINE
     Dosage: 275 MG, QD (PM) (CUMULATIVE DOSE:457313.53 MG)
     Route: 065
     Dates: start: 20220521
  85. CLOZAPINE [Suspect]
     Active Substance: CLOZAPINE
     Dosage: 100 MILLIGRAM, QD, IN THE MORNING (POWDER FOR INFUSION)
     Route: 048
     Dates: start: 20220719
  86. CLOZAPINE [Suspect]
     Active Substance: CLOZAPINE
     Dosage: 50 MILLIGRAM, QD, MIDDAY, TABLET (POWDER FOR INFUSION)
     Route: 065
  87. CLOZAPINE [Suspect]
     Active Substance: CLOZAPINE
     Dosage: 275 MILLIGRAM, QD, AT NIGHT, PM (POWDER FOR INFUSION)
     Route: 065
  88. CLOZAPINE [Suspect]
     Active Substance: CLOZAPINE
     Dosage: 50 MILLIGRAM, QD, MIDDAY, TABLET (POWDER FOR INFUSION)
     Route: 065
  89. CLOZAPINE [Suspect]
     Active Substance: CLOZAPINE
     Route: 048
     Dates: start: 20210521, end: 2021
  90. CLOZAPINE [Suspect]
     Active Substance: CLOZAPINE
     Dosage: 275 MILLIGRAM, QD, AT NIGHT, PM (POWDER FOR INFUSION)
     Route: 065
  91. CLOZAPINE [Suspect]
     Active Substance: CLOZAPINE
     Dosage: 200 MILLIGRAM, BID, 400 MG QD (POWDER FOR INFUSION)
     Route: 065
  92. CLOZAPINE [Suspect]
     Active Substance: CLOZAPINE
     Dosage: 245 MILLIGRAM, QD, IN THE MORNING (POWDER FOR INFUSION)
     Route: 065
     Dates: start: 2011
  93. CLOZAPINE [Suspect]
     Active Substance: CLOZAPINE
     Dosage: 200 MILLIGRAM, BID, 400 MG QD (POWDER FOR INFUSION)
     Route: 048
  94. CLOZAPINE [Suspect]
     Active Substance: CLOZAPINE
     Dosage: 100 MILLIGRAM, QD, IN THE MORNING (POWDER FOR INFUSION)
     Route: 065
  95. CLOZAPINE [Suspect]
     Active Substance: CLOZAPINE
     Dosage: 100 MILLIGRAM, QD, IN THE MORNING (POWDER FOR INFUSION)
     Route: 065
  96. CLOZAPINE [Suspect]
     Active Substance: CLOZAPINE
     Dosage: 300 MILLIGRAM, QD, AT NIGHT, PM (POWDER FOR INFUSION)
     Route: 048
  97. CLOZAPINE [Suspect]
     Active Substance: CLOZAPINE
     Dosage: 100 MILLIGRAM, QD
     Route: 048
     Dates: start: 2011
  98. CLOZAPINE [Suspect]
     Active Substance: CLOZAPINE
     Dosage: 200 MILLIGRAM, BID, 400 MG QD (POWDER FOR INFUSION)
     Route: 065
  99. CLOZAPINE [Suspect]
     Active Substance: CLOZAPINE
     Dosage: 300 MILLIGRAM, QD, AT NIGHT, PM (POWDER FOR INFUSION)
     Route: 065
     Dates: start: 20100823
  100. CLOZAPINE [Suspect]
     Active Substance: CLOZAPINE
     Dosage: 200 MILLIGRAM, BID, 400 MG QD (POWDER FOR INFUSION)
     Route: 048
  101. CLOZAPINE [Suspect]
     Active Substance: CLOZAPINE
     Dosage: 50 MILLIGRAM, QD, MIDDAY, (POWDER FOR INFUSION) TABLET
     Route: 048
     Dates: start: 20191209, end: 20191223
  102. CLOZAPINE [Suspect]
     Active Substance: CLOZAPINE
     Dosage: 50 MILLIGRAM, QD, MIDDAY, TABLET (POWDER FOR INFUSION)
     Route: 065
  103. CLOZAPINE [Suspect]
     Active Substance: CLOZAPINE
     Dosage: 100 MILLIGRAM, QD, IN THE MORNING (POWDER FOR INFUSION)
     Route: 065
  104. CLOZAPINE [Suspect]
     Active Substance: CLOZAPINE
     Dosage: 300 MILLIGRAM, QD, AT NIGHT, PM (POWDER FOR INFUSION)
     Route: 065
  105. CLOZAPINE [Suspect]
     Active Substance: CLOZAPINE
     Dosage: 275 MILLIGRAM, QD, AT NIGHT, PM (POWDER FOR INFUSION)
     Route: 065
  106. CLOZAPINE [Suspect]
     Active Substance: CLOZAPINE
     Dosage: 275 MILLIGRAM, QD, AT NIGHT, PM (POWDER FOR INFUSION)
     Route: 065
  107. CLOZAPINE [Suspect]
     Active Substance: CLOZAPINE
     Dosage: 400 MILLIGRAM, BID (POWDER FOR INFUSION)
     Route: 048
  108. CLOZAPINE [Suspect]
     Active Substance: CLOZAPINE
     Route: 065
     Dates: start: 20201207
  109. CLOZAPINE [Suspect]
     Active Substance: CLOZAPINE
     Dosage: 400 MG, QD
     Route: 048
  110. CLOZAPINE [Suspect]
     Active Substance: CLOZAPINE
     Route: 065
     Dates: start: 20200521
  111. CLOZAPINE [Suspect]
     Active Substance: CLOZAPINE
     Route: 048
  112. CLOZAPINE [Suspect]
     Active Substance: CLOZAPINE
     Route: 065
     Dates: start: 2011
  113. CLOZAPINE [Suspect]
     Active Substance: CLOZAPINE
     Route: 048
     Dates: start: 20191207
  114. CLOZAPINE [Suspect]
     Active Substance: CLOZAPINE
     Route: 048
     Dates: start: 20201207
  115. CLOZAPINE [Suspect]
     Active Substance: CLOZAPINE
     Route: 065
  116. ZUCLOPENTHIXOL [Suspect]
     Active Substance: ZUCLOPENTHIXOL
     Indication: Schizophrenia
     Route: 065
     Dates: start: 20030204, end: 20040217
  117. ZUCLOPENTHIXOL [Suspect]
     Active Substance: ZUCLOPENTHIXOL
     Dosage: 245 MILLIGRAM, QD
     Route: 048
     Dates: start: 20200521
  118. ZUCLOPENTHIXOL [Suspect]
     Active Substance: ZUCLOPENTHIXOL
     Dosage: 245 MILLIGRAM, QD
     Route: 048
     Dates: start: 20100823, end: 20200823
  119. ZUCLOPENTHIXOL [Suspect]
     Active Substance: ZUCLOPENTHIXOL
     Dosage: 800 MILLIGRAM, Q.W.
     Route: 030
     Dates: start: 20041018, end: 20041018
  120. ZUCLOPENTHIXOL [Suspect]
     Active Substance: ZUCLOPENTHIXOL
     Dosage: 800 MILLIGRAM, Q.W.
     Route: 030
     Dates: start: 20040601, end: 20041018
  121. ZUCLOPENTHIXOL [Suspect]
     Active Substance: ZUCLOPENTHIXOL
     Route: 048
     Dates: start: 20200521
  122. ZUCLOPENTHIXOL [Suspect]
     Active Substance: ZUCLOPENTHIXOL
     Route: 065
     Dates: start: 20040601
  123. ZUCLOPENTHIXOL [Suspect]
     Active Substance: ZUCLOPENTHIXOL
     Dosage: 300 MILLIGRAM, Q.W
     Route: 065
  124. ZUCLOPENTHIXOL [Suspect]
     Active Substance: ZUCLOPENTHIXOL
     Dosage: 800 MILLIGRAM, Q.W.
     Route: 030
     Dates: start: 20030204, end: 20040217
  125. ZUCLOPENTHIXOL [Suspect]
     Active Substance: ZUCLOPENTHIXOL
     Dosage: 300 MILLIGRAM, Q.W., INJECTION (STOP DATE: 18-OCT-2009)
     Route: 030
  126. ZUCLOPENTHIXOL [Suspect]
     Active Substance: ZUCLOPENTHIXOL
     Route: 030
     Dates: start: 20041018
  127. ZUCLOPENTHIXOL [Suspect]
     Active Substance: ZUCLOPENTHIXOL
     Route: 030
     Dates: start: 20091018
  128. ZUCLOPENTHIXOL [Suspect]
     Active Substance: ZUCLOPENTHIXOL
     Dosage: 300 MILLIGRAM, Q.W., INJECTION
     Route: 030
     Dates: start: 20091018
  129. ZUCLOPENTHIXOL [Suspect]
     Active Substance: ZUCLOPENTHIXOL
     Dosage: 300 MILLIGRAM, QD, INJECTION
     Route: 030
     Dates: start: 20091009
  130. ZUCLOPENTHIXOL [Suspect]
     Active Substance: ZUCLOPENTHIXOL
     Route: 065
     Dates: start: 20041018, end: 20041018
  131. ZUCLOPENTHIXOL [Suspect]
     Active Substance: ZUCLOPENTHIXOL
     Route: 065
  132. ZUCLOPENTHIXOL [Suspect]
     Active Substance: ZUCLOPENTHIXOL
     Route: 065
     Dates: start: 20040601, end: 20041018
  133. ZUCLOPENTHIXOL [Suspect]
     Active Substance: ZUCLOPENTHIXOL
     Dosage: 400 MILLIGRAM, Q.W., WEEKLY, INJECTION
     Route: 065
     Dates: start: 20040217, end: 20040601
  134. ZUCLOPENTHIXOL [Suspect]
     Active Substance: ZUCLOPENTHIXOL
     Dosage: 300 MILLIGRAM, Q.W., INJECTION
     Route: 030
     Dates: start: 20091009
  135. ZUCLOPENTHIXOL [Suspect]
     Active Substance: ZUCLOPENTHIXOL
     Route: 030
     Dates: start: 20040901
  136. LITHIUM [Suspect]
     Active Substance: LITHIUM
     Indication: Product used for unknown indication
     Dosage: UNK
     Route: 065
  137. LITHIUM [Suspect]
     Active Substance: LITHIUM
     Dosage: 6 MILLIGRAM, QD
     Route: 048
  138. LITHIUM [Suspect]
     Active Substance: LITHIUM
     Route: 065
  139. LITHIUM [Suspect]
     Active Substance: LITHIUM
     Route: 048
  140. LITHIUM [Suspect]
     Active Substance: LITHIUM
     Route: 065
  141. LITHIUM [Suspect]
     Active Substance: LITHIUM
     Route: 048
  142. LITHIUM [Suspect]
     Active Substance: LITHIUM
     Route: 065
  143. LITHIUM [Suspect]
     Active Substance: LITHIUM
     Route: 065
  144. LITHIUM [Suspect]
     Active Substance: LITHIUM
     Route: 048
  145. LITHIUM [Suspect]
     Active Substance: LITHIUM
     Route: 048
  146. LITHIUM [Suspect]
     Active Substance: LITHIUM
     Route: 065
  147. LITHIUM [Suspect]
     Active Substance: LITHIUM
     Route: 065
  148. LITHIUM [Suspect]
     Active Substance: LITHIUM
     Route: 065
  149. LORAZEPAM [Suspect]
     Active Substance: LORAZEPAM
     Indication: Schizophrenia
     Route: 048
  150. LORAZEPAM [Suspect]
     Active Substance: LORAZEPAM
     Route: 048
  151. LORAZEPAM [Suspect]
     Active Substance: LORAZEPAM
     Route: 048
  152. LORAZEPAM [Suspect]
     Active Substance: LORAZEPAM
     Route: 048
  153. LORAZEPAM [Suspect]
     Active Substance: LORAZEPAM
     Route: 048
  154. LORAZEPAM [Suspect]
     Active Substance: LORAZEPAM
     Route: 048
  155. LORAZEPAM [Suspect]
     Active Substance: LORAZEPAM
     Route: 048
  156. LORAZEPAM [Suspect]
     Active Substance: LORAZEPAM
     Route: 048
  157. LORAZEPAM [Suspect]
     Active Substance: LORAZEPAM
     Route: 048
  158. RISPERIDONE [Suspect]
     Active Substance: RISPERIDONE
     Indication: Schizophrenia
     Dosage: 2 MILLIGRAM, BID
     Route: 048
  159. RISPERIDONE [Suspect]
     Active Substance: RISPERIDONE
     Dosage: 3 MILLIGRAM, BID, 6 MG QD
     Route: 065
  160. RISPERIDONE [Suspect]
     Active Substance: RISPERIDONE
     Route: 048
  161. RISPERIDONE [Suspect]
     Active Substance: RISPERIDONE
     Dosage: 6 MILLIGRAM, BID, 12 MILLIGRAM QD
     Route: 065
  162. RISPERIDONE [Suspect]
     Active Substance: RISPERIDONE
     Dosage: 3 MILLIGRAM, QD
     Route: 048
  163. RISPERIDONE [Suspect]
     Active Substance: RISPERIDONE
     Dosage: 1 MILLIGRAM, BID, 2 MILLIGRAM QD
     Route: 065
  164. RISPERIDONE [Suspect]
     Active Substance: RISPERIDONE
     Dosage: 1 GRAM, QD
     Route: 048
  165. RISPERIDONE [Suspect]
     Active Substance: RISPERIDONE
     Dosage: 1 MILLIGRAM, QD
     Route: 048
  166. RISPERIDONE [Suspect]
     Active Substance: RISPERIDONE
     Dosage: 2 GRAM, QD
     Route: 065
  167. RISPERIDONE [Suspect]
     Active Substance: RISPERIDONE
     Dosage: 3 MILLIGRAM, BID, 6 MG QD
     Route: 048
  168. RISPERIDONE [Suspect]
     Active Substance: RISPERIDONE
     Dosage: 1 GRAM, QD
     Route: 048
  169. RISPERIDONE [Suspect]
     Active Substance: RISPERIDONE
     Dosage: 2 MILLIGRAM, BID, 4 MG QD
     Route: 048
  170. RISPERIDONE [Suspect]
     Active Substance: RISPERIDONE
     Dosage: 3 MILLIGRAM, BID, 6 MG QD
     Route: 048
  171. RISPERIDONE [Suspect]
     Active Substance: RISPERIDONE
     Dosage: 1 MILLIGRAM, QD
     Route: 065
  172. RISPERIDONE [Suspect]
     Active Substance: RISPERIDONE
     Dosage: 3 MILLIGRAM, BID, 6 MG QD
     Route: 048
  173. RISPERIDONE [Suspect]
     Active Substance: RISPERIDONE
     Dosage: 2 MILLIGRAM, BID, 4 MG QD
     Route: 048
  174. RISPERIDONE [Suspect]
     Active Substance: RISPERIDONE
     Dosage: 2 MILLIGRAM, BID, 4 MG QD
     Route: 065
  175. RISPERIDONE [Suspect]
     Active Substance: RISPERIDONE
     Dosage: 2 MILLIGRAM, BID, 4 MG QD
     Route: 065
  176. RISPERIDONE [Suspect]
     Active Substance: RISPERIDONE
     Dosage: 2 MILLIGRAM, BID
     Route: 065
  177. RISPERIDONE [Suspect]
     Active Substance: RISPERIDONE
     Dosage: 2 MILLIGRAM, BID
     Route: 065
  178. RISPERIDONE [Suspect]
     Active Substance: RISPERIDONE
     Dosage: 1 GRAM, QD
     Route: 048
  179. RISPERIDONE [Suspect]
     Active Substance: RISPERIDONE
     Dosage: 3 MILLIGRAM, BID, 6 MG QD
     Route: 048
  180. RISPERIDONE [Suspect]
     Active Substance: RISPERIDONE
     Dosage: 1 GRAM, QD
     Route: 065
  181. RISPERIDONE [Suspect]
     Active Substance: RISPERIDONE
     Dosage: 3 MILLIGRAM, BID, 6 MG QD
     Route: 048
  182. RISPERIDONE [Suspect]
     Active Substance: RISPERIDONE
     Dosage: 1 MILLIGRAM, QD
     Route: 065
  183. RISPERIDONE [Suspect]
     Active Substance: RISPERIDONE
     Dosage: 3 MILLIGRAM, BID, 6 MG QD
     Route: 065
  184. RISPERIDONE [Suspect]
     Active Substance: RISPERIDONE
     Dosage: 1 MILLIGRAM, QD
     Route: 065
  185. RISPERIDONE [Suspect]
     Active Substance: RISPERIDONE
     Dosage: 1 GRAM, QD
     Route: 065
  186. RISPERIDONE [Suspect]
     Active Substance: RISPERIDONE
     Dosage: 1 MILLIGRAM, QD
     Route: 065
  187. RISPERIDONE [Suspect]
     Active Substance: RISPERIDONE
     Dosage: 2 MILLIGRAM, BID
     Route: 065
  188. RISPERIDONE [Suspect]
     Active Substance: RISPERIDONE
     Dosage: 1 MILLIGRAM, QD
     Route: 065
  189. RISPERIDONE [Suspect]
     Active Substance: RISPERIDONE
     Dosage: 2 MILLIGRAM, BID
     Route: 065
  190. RISPERIDONE [Suspect]
     Active Substance: RISPERIDONE
     Dosage: 3 MILLIGRAM, BID, 6 MG QD
     Route: 048
  191. RISPERIDONE [Suspect]
     Active Substance: RISPERIDONE
     Dosage: 3 MILLIGRAM, BID, 6 MG QD
     Route: 065
  192. RISPERIDONE [Suspect]
     Active Substance: RISPERIDONE
     Dosage: 3 MILLIGRAM, BID, 6 MG QD
     Route: 065
  193. RISPERIDONE [Suspect]
     Active Substance: RISPERIDONE
     Dosage: 2 MILLIGRAM, BID
     Route: 065
  194. RISPERIDONE [Suspect]
     Active Substance: RISPERIDONE
     Dosage: 2 MILLIGRAM, BID
     Route: 065
  195. RISPERIDONE [Suspect]
     Active Substance: RISPERIDONE
     Dosage: 1 GRAM, QD
     Route: 065
  196. RISPERIDONE [Suspect]
     Active Substance: RISPERIDONE
     Dosage: 1 MILLIGRAM, QD
     Route: 065
  197. RISPERIDONE [Suspect]
     Active Substance: RISPERIDONE
     Dosage: 3 MILLIGRAM, BID, 6 MG QD
     Route: 065
  198. RISPERIDONE [Suspect]
     Active Substance: RISPERIDONE
     Dosage: 1 GRAM, QD
     Route: 065
  199. RISPERIDONE [Suspect]
     Active Substance: RISPERIDONE
     Dosage: 2 MILLIGRAM, BID
     Route: 065
  200. TRASTUZUMAB [Suspect]
     Active Substance: TRASTUZUMAB
     Indication: Breast cancer metastatic
     Route: 042
     Dates: start: 20150930
  201. TRASTUZUMAB [Suspect]
     Active Substance: TRASTUZUMAB
     Route: 042
     Dates: start: 20151130
  202. TRASTUZUMAB [Suspect]
     Active Substance: TRASTUZUMAB
     Route: 042
     Dates: start: 20150930
  203. TRASTUZUMAB [Suspect]
     Active Substance: TRASTUZUMAB
     Route: 042
  204. TRASTUZUMAB [Suspect]
     Active Substance: TRASTUZUMAB
     Route: 042
  205. TRASTUZUMAB [Suspect]
     Active Substance: TRASTUZUMAB
     Route: 042
  206. TRASTUZUMAB [Suspect]
     Active Substance: TRASTUZUMAB
     Route: 042
     Dates: start: 20150930
  207. TRASTUZUMAB [Suspect]
     Active Substance: TRASTUZUMAB
     Dosage: 1218 MILLIGRAM, Q.W.
     Route: 065
     Dates: start: 20150930
  208. TRASTUZUMAB [Suspect]
     Active Substance: TRASTUZUMAB
     Route: 065
  209. PACLITAXEL [Suspect]
     Active Substance: PACLITAXEL
     Indication: Breast cancer metastatic
     Dosage: 150 MILLIGRAM, QD, INJECTION
     Route: 042
     Dates: start: 20151223, end: 20151223
  210. PACLITAXEL [Suspect]
     Active Substance: PACLITAXEL
     Dosage: 150 MILLIGRAM, Q.W. (CUMULATIVE DOSE: 428.57 MG)
     Route: 042
     Dates: start: 20151111, end: 20151222
  211. PACLITAXEL [Suspect]
     Active Substance: PACLITAXEL
     Dosage: UNK UNK, Q.W.; CUMULATIVE DOSE: 428.57 MG
     Route: 065
     Dates: start: 20151111, end: 20151222
  212. PACLITAXEL [Suspect]
     Active Substance: PACLITAXEL
     Dosage: 120 MILLIGRAM, Q.W.; CUMULATIVE DOSE: 377.142
     Route: 042
     Dates: start: 20151223, end: 20151223
  213. PACLITAXEL [Suspect]
     Active Substance: PACLITAXEL
     Dosage: 120 MILLIGRAM, Q.W.; 171.428571
     Route: 042
     Dates: start: 20151111, end: 20151222
  214. PERTUZUMAB [Suspect]
     Active Substance: PERTUZUMAB
     Indication: Breast cancer metastatic
     Route: 065
     Dates: start: 20150930
  215. PERTUZUMAB [Suspect]
     Active Substance: PERTUZUMAB
     Route: 065
  216. PERTUZUMAB [Suspect]
     Active Substance: PERTUZUMAB
     Dosage: 1260 MILLIGRAM, Q.W.(420 MG, Q3W)
     Route: 065
     Dates: start: 20151021
  217. PERTUZUMAB [Suspect]
     Active Substance: PERTUZUMAB
     Route: 048
  218. PERTUZUMAB [Suspect]
     Active Substance: PERTUZUMAB
     Route: 042
     Dates: start: 20151021
  219. PERTUZUMAB [Suspect]
     Active Substance: PERTUZUMAB
     Route: 065
  220. PERTUZUMAB [Suspect]
     Active Substance: PERTUZUMAB
     Route: 065
     Dates: start: 20150930
  221. PERTUZUMAB [Suspect]
     Active Substance: PERTUZUMAB
     Route: 042
     Dates: start: 20151021
  222. PERTUZUMAB [Suspect]
     Active Substance: PERTUZUMAB
     Dosage: 2 UNIT, Q.W. INJECTION
     Route: 042
     Dates: start: 20151021
  223. DOCETAXEL [Suspect]
     Active Substance: DOCETAXEL
     Indication: Breast cancer metastatic
     Route: 065
     Dates: start: 20150930
  224. DOCETAXEL [Suspect]
     Active Substance: DOCETAXEL
     Route: 048
     Dates: start: 20040217, end: 20040601
  225. DOCETAXEL [Suspect]
     Active Substance: DOCETAXEL
     Route: 065
     Dates: start: 20151222
  226. DOCETAXEL [Suspect]
     Active Substance: DOCETAXEL
     Route: 065
     Dates: start: 20151222
  227. DOCETAXEL [Suspect]
     Active Substance: DOCETAXEL
     Route: 042
     Dates: start: 20150930, end: 20151021
  228. DOCETAXEL [Suspect]
     Active Substance: DOCETAXEL
     Route: 065
     Dates: start: 201509
  229. HALOPERIDOL DECANOATE [Suspect]
     Active Substance: HALOPERIDOL DECANOATE
     Indication: Schizophrenia
     Dosage: 5 MILLIGRAM, BID
     Route: 048
  230. HALOPERIDOL DECANOATE [Suspect]
     Active Substance: HALOPERIDOL DECANOATE
     Dosage: 10 MILLIGRAM, QD
     Route: 048
  231. HALOPERIDOL DECANOATE [Suspect]
     Active Substance: HALOPERIDOL DECANOATE
     Dosage: 10 MILLIGRAM, BID
     Route: 048
  232. HALOPERIDOL DECANOATE [Suspect]
     Active Substance: HALOPERIDOL DECANOATE
     Dosage: 40 MILLIGRAM, QD
     Route: 065
  233. HALOPERIDOL DECANOATE [Suspect]
     Active Substance: HALOPERIDOL DECANOATE
     Dosage: 10 MILLIGRAM, QD
     Route: 048
  234. HALOPERIDOL DECANOATE [Suspect]
     Active Substance: HALOPERIDOL DECANOATE
     Dosage: 40 MILLIGRAM, QD
     Route: 065
  235. HALOPERIDOL DECANOATE [Suspect]
     Active Substance: HALOPERIDOL DECANOATE
     Dosage: 5 MILLIGRAM, BID
     Route: 048
  236. HALOPERIDOL DECANOATE [Suspect]
     Active Substance: HALOPERIDOL DECANOATE
     Dosage: 40 MILLIGRAM, QD
     Route: 065
  237. HALOPERIDOL DECANOATE [Suspect]
     Active Substance: HALOPERIDOL DECANOATE
     Dosage: 10 MILLIGRAM, QD
     Route: 065
  238. HALOPERIDOL DECANOATE [Suspect]
     Active Substance: HALOPERIDOL DECANOATE
     Dosage: 10 MILLIGRAM, QD
     Route: 065
  239. HALOPERIDOL DECANOATE [Suspect]
     Active Substance: HALOPERIDOL DECANOATE
     Dosage: 10 MILLIGRAM, BID
     Route: 065
  240. HALOPERIDOL DECANOATE [Suspect]
     Active Substance: HALOPERIDOL DECANOATE
     Dosage: 20 MILLIGRAM, QD (10 MILLIGRAM, BID)
     Route: 048
  241. HALOPERIDOL DECANOATE [Suspect]
     Active Substance: HALOPERIDOL DECANOATE
     Dosage: 5 MILLIGRAM, QD
     Route: 048
  242. HALOPERIDOL DECANOATE [Suspect]
     Active Substance: HALOPERIDOL DECANOATE
     Dosage: 10 MILLIGRAM, QD
     Route: 065
  243. HALOPERIDOL DECANOATE [Suspect]
     Active Substance: HALOPERIDOL DECANOATE
     Dosage: 10 MILLIGRAM, QD (5 MG, BID)
     Route: 065
  244. HALOPERIDOL DECANOATE [Suspect]
     Active Substance: HALOPERIDOL DECANOATE
     Dosage: 40 MILLIGRAM, QD ( (20 MG, BID)
     Route: 048
  245. HALOPERIDOL DECANOATE [Suspect]
     Active Substance: HALOPERIDOL DECANOATE
     Dosage: 10 MILLIGRAM, BID
     Route: 065
  246. HALOPERIDOL DECANOATE [Suspect]
     Active Substance: HALOPERIDOL DECANOATE
     Dosage: 10 MILLIGRAM, BID
     Route: 065
  247. HALOPERIDOL DECANOATE [Suspect]
     Active Substance: HALOPERIDOL DECANOATE
     Dosage: 10 MILLIGRAM, BID
     Route: 065
  248. HALOPERIDOL DECANOATE [Suspect]
     Active Substance: HALOPERIDOL DECANOATE
     Dosage: 20 MILLIGRAM, QD (10 MILLIGRAM, BID)
     Route: 048
  249. HALOPERIDOL DECANOATE [Suspect]
     Active Substance: HALOPERIDOL DECANOATE
     Dosage: 10 MILLIGRAM, QD
     Route: 065
  250. HALOPERIDOL DECANOATE [Suspect]
     Active Substance: HALOPERIDOL DECANOATE
     Dosage: 20 MILLIGRAM, QD (10 MILLIGRAM, BID)
     Route: 065
  251. HALOPERIDOL DECANOATE [Suspect]
     Active Substance: HALOPERIDOL DECANOATE
     Dosage: 5 MILLIGRAM, BID
     Route: 065
  252. ZUCLOPENTHIXOL [Suspect]
     Active Substance: ZUCLOPENTHIXOL
     Indication: Product used for unknown indication
     Route: 048
     Dates: start: 20040217, end: 20040601
  253. ZUCLOPENTHIXOL [Suspect]
     Active Substance: ZUCLOPENTHIXOL
     Dosage: 300 MILLIGRAM, Q.W.
     Route: 065
  254. ZUCLOPENTHIXOL [Suspect]
     Active Substance: ZUCLOPENTHIXOL
     Dosage: 300 MILLIGRAM, Q.W.
     Route: 030
     Dates: start: 20091018
  255. ZUCLOPENTHIXOL [Suspect]
     Active Substance: ZUCLOPENTHIXOL
     Route: 048
  256. RISPERIDONE [Suspect]
     Active Substance: RISPERIDONE
     Indication: Schizophrenia
     Dosage: 3 MILLIGRAM, QD
     Route: 048
  257. RISPERIDONE [Suspect]
     Active Substance: RISPERIDONE
     Dosage: 2 MILLIGRAM, QD
     Route: 048
  258. RISPERIDONE [Suspect]
     Active Substance: RISPERIDONE
     Dosage: 4 MILLIGRAM, QD
     Route: 048
  259. RISPERIDONE [Suspect]
     Active Substance: RISPERIDONE
     Dosage: 1 MILLIGRAM, QD
     Route: 048
  260. RISPERIDONE [Suspect]
     Active Substance: RISPERIDONE
     Dosage: 6 MILLIGRAM, QD
     Route: 048
  261. RISPERIDONE [Suspect]
     Active Substance: RISPERIDONE
     Dosage: 1 GRAM, QD
     Route: 048
  262. RISPERIDONE [Suspect]
     Active Substance: RISPERIDONE
     Dosage: 2 MILLIGRAM, BID
     Route: 048
  263. RISPERIDONE [Suspect]
     Active Substance: RISPERIDONE
     Dosage: 3 MILLIGRAM, BID
     Route: 048
  264. RISPERIDONE [Suspect]
     Active Substance: RISPERIDONE
     Dosage: 4 MILLIGRAM, QD
     Route: 048
     Dates: start: 1998
  265. RISPERIDONE [Suspect]
     Active Substance: RISPERIDONE
     Route: 048
  266. RISPERIDONE [Suspect]
     Active Substance: RISPERIDONE
     Route: 048
  267. DENOSUMAB [Suspect]
     Active Substance: DENOSUMAB
     Indication: Metastases to bone
     Route: 058
     Dates: start: 20150930
  268. DENOSUMAB [Suspect]
     Active Substance: DENOSUMAB
     Indication: Gastrooesophageal reflux disease
     Dosage: 120 MILLIGRAM (625 MG, QID)
     Route: 058
  269. DENOSUMAB [Suspect]
     Active Substance: DENOSUMAB
     Route: 065
  270. DENOSUMAB [Suspect]
     Active Substance: DENOSUMAB
     Indication: Gastrooesophageal reflux disease
     Route: 065
     Dates: start: 20150930
  271. DENOSUMAB [Suspect]
     Active Substance: DENOSUMAB
     Indication: Metastases to bone
     Dosage: 625 MILLIGRAM, QID
     Route: 065
  272. DENOSUMAB [Suspect]
     Active Substance: DENOSUMAB
     Dosage: 120 MILLIGRAM, QD
     Route: 058
     Dates: start: 20150930
  273. PIPERACILLIN SODIUM\TAZOBACTAM SODIUM [Suspect]
     Active Substance: PIPERACILLIN SODIUM\TAZOBACTAM SODIUM
     Indication: Febrile neutropenia
     Route: 065
     Dates: start: 20151121, end: 201511
  274. CHLORPHENIRAMINE MALEATE [Concomitant]
     Active Substance: CHLORPHENIRAMINE MALEATE
     Indication: Product used for unknown indication
     Dosage: 10 MILLIGRAM, Q.W. (CUMULATIVE DOSE 28.57)
     Route: 058
     Dates: start: 20151111
  275. CHOLECALCIFEROL [Concomitant]
     Active Substance: CHOLECALCIFEROL
     Indication: Product used for unknown indication
     Dosage: 2 DOSAGE FORM, QD, 2 MG/3ML, DAILY
     Route: 048
  276. CALCIUM\CHOLECALCIFEROL [Concomitant]
     Active Substance: CALCIUM\CHOLECALCIFEROL
     Indication: Product used for unknown indication
     Dosage: 2 DOSAGE FORM, QD
     Route: 048
     Dates: start: 20091018
  277. CALCIUM\CHOLECALCIFEROL [Concomitant]
     Active Substance: CALCIUM\CHOLECALCIFEROL
     Dosage: 2 DOSAGE FORM, QD (DOSE FORM: 245)
     Route: 048
  278. AMOXICILLIN\CLAVULANATE POTASSIUM [Concomitant]
     Active Substance: AMOXICILLIN\CLAVULANATE POTASSIUM
     Indication: Febrile neutropenia
     Dosage: 2500 MILLIGRAM, QD
     Route: 065
     Dates: start: 20151122, end: 20151125
  279. AMOXICILLIN\CLAVULANATE POTASSIUM [Concomitant]
     Active Substance: AMOXICILLIN\CLAVULANATE POTASSIUM
     Route: 065
  280. AMOXICILLIN\CLAVULANATE POTASSIUM [Concomitant]
     Active Substance: AMOXICILLIN\CLAVULANATE POTASSIUM
     Route: 065
     Dates: start: 20151111
  281. AMOXICILLIN\CLAVULANATE POTASSIUM [Concomitant]
     Active Substance: AMOXICILLIN\CLAVULANATE POTASSIUM
     Dosage: 625 MILLIGRAM, QID, 2500 MILLIGRAM QD
     Route: 065
     Dates: start: 20151122, end: 20151215
  282. AMOXICILLIN\CLAVULANATE POTASSIUM [Concomitant]
     Active Substance: AMOXICILLIN\CLAVULANATE POTASSIUM
     Route: 065
     Dates: start: 20151122, end: 20151125
  283. DULOXETINE [Concomitant]
     Active Substance: DULOXETINE
     Indication: Breast cancer metastatic
     Route: 065
  284. GENTAMICIN [Concomitant]
     Active Substance: GENTAMICIN
     Indication: Febrile neutropenia
     Route: 042
     Dates: start: 20151121, end: 201511
  285. MIRTAZAPINE [Concomitant]
     Active Substance: MIRTAZAPINE
     Indication: Product used for unknown indication
     Dosage: 15 MILLIGRAM, QD
     Route: 048
     Dates: start: 201510
  286. MIRTAZAPINE [Concomitant]
     Active Substance: MIRTAZAPINE
     Indication: Product used for unknown indication
     Dosage: 30MG, BID
     Route: 065
  287. MIRTAZAPINE [Concomitant]
     Active Substance: MIRTAZAPINE
     Route: 065
  288. MORPHINE [Concomitant]
     Active Substance: MORPHINE
     Indication: Pain
     Dosage: 15 MILLIGRAM, QD
     Route: 048
     Dates: start: 201510
  289. MORPHINE [Concomitant]
     Active Substance: MORPHINE
     Dosage: 30 MILLIGRAM ((EVERY 0.5 DAY)
     Route: 048
     Dates: start: 201509
  290. MORPHINE [Concomitant]
     Active Substance: MORPHINE
     Dosage: 60 MILLIGRAM, QD
     Route: 065
     Dates: start: 201509
  291. MORPHINE [Concomitant]
     Active Substance: MORPHINE
     Route: 048
     Dates: start: 201509
  292. MORPHINE SULFATE [Concomitant]
     Active Substance: MORPHINE SULFATE
     Indication: Product used for unknown indication
     Dosage: 30 MILLIGRAM, BID (EVERY 0.5 DAY)
     Route: 065
     Dates: start: 201509
  293. MORPHINE SULFATE [Concomitant]
     Active Substance: MORPHINE SULFATE
     Route: 065
     Dates: start: 201509
  294. PREGABALIN [Concomitant]
     Active Substance: PREGABALIN
     Indication: Product used for unknown indication
     Dosage: 150 MILLIGRAM, QD (75 MG, BID)
     Route: 048
     Dates: start: 201509
  295. PREGABALIN [Concomitant]
     Active Substance: PREGABALIN
     Dosage: 75 MILLIGRAM, BID; EVERY 0.5 DAY
     Route: 048
     Dates: start: 201509
  296. PREGABALIN [Concomitant]
     Active Substance: PREGABALIN
     Dosage: 150 MILLIGRAM, BID
     Route: 048
     Dates: start: 201509
  297. RANITIDINE [Concomitant]
     Active Substance: RANITIDINE
     Indication: Gastrooesophageal reflux disease
     Dosage: 150 MILLIGRAM, Q.W.
     Route: 058
  298. RANITIDINE [Concomitant]
     Active Substance: RANITIDINE
     Dosage: 75 MILLIGRAM, Q.W.
     Route: 058
     Dates: start: 20151111
  299. RANITIDINE [Concomitant]
     Active Substance: RANITIDINE
     Dosage: 50 MILLIGRAM, Q.W.
     Route: 058
  300. RANITIDINE [Concomitant]
     Active Substance: RANITIDINE
     Dosage: 50 MILLIGRAM, Q.W.
     Route: 065
     Dates: start: 20151111
  301. TAZOBACTAM SODIUM [Concomitant]
     Active Substance: TAZOBACTAM SODIUM
     Indication: Febrile neutropenia
     Route: 065
     Dates: start: 20151121, end: 201511

REACTIONS (38)
  - Neoplasm progression [Fatal]
  - Delusion of grandeur [Fatal]
  - Hallucination, auditory [Fatal]
  - Affective disorder [Fatal]
  - Lymphocyte count decreased [Fatal]
  - Psychotic disorder [Fatal]
  - Extrapyramidal disorder [Fatal]
  - Platelet count decreased [Fatal]
  - Leukopenia [Fatal]
  - Neutropenia [Fatal]
  - Fatigue [Fatal]
  - Lymphocyte count abnormal [Fatal]
  - Neutrophil count increased [Fatal]
  - SARS-CoV-2 test positive [Fatal]
  - Schizophrenia [Fatal]
  - COVID-19 [Fatal]
  - Seizure [Fatal]
  - Neuropathy peripheral [Fatal]
  - Fatigue [Fatal]
  - Fatigue [Fatal]
  - Disease progression [Fatal]
  - Rhinalgia [Fatal]
  - Cellulitis [Fatal]
  - Alopecia [Fatal]
  - Mucosal inflammation [Fatal]
  - Dyspepsia [Fatal]
  - Nausea [Fatal]
  - Diarrhoea [Fatal]
  - Leukocytosis [Fatal]
  - Leukocytosis [Fatal]
  - Neutrophil count decreased [Fatal]
  - Extrapyramidal disorder [Fatal]
  - Thrombocytopenia [Fatal]
  - Hospitalisation [Fatal]
  - Off label use [Fatal]
  - Incorrect dose administered [Fatal]
  - Overdose [Fatal]
  - Intentional product misuse [Fatal]

NARRATIVE: CASE EVENT DATE: 20151101
